FAERS Safety Report 25024656 (Version 2)
Quarter: 2025Q1

REPORT INFORMATION
  Report Type: Spontaneous
  Country: US (occurrence: US)
  Receive Date: 20250228
  Receipt Date: 20250311
  Transmission Date: 20250408
  Serious: No
  Sender: ROCHE
  Company Number: US-ROCHE-10000213843

PATIENT
  Age: 32 Year
  Sex: Female
  Weight: 86.18 kg

DRUGS (16)
  1. XOLAIR [Suspect]
     Active Substance: OMALIZUMAB
     Indication: Urticaria
     Dosage: STRENGTH: 300MG/2ML
     Route: 058
     Dates: start: 202402, end: 20250222
  2. XOLAIR [Suspect]
     Active Substance: OMALIZUMAB
     Indication: Mast cell activation syndrome
  3. XOLAIR [Suspect]
     Active Substance: OMALIZUMAB
     Indication: Idiopathic urticaria
  4. XOLAIR [Suspect]
     Active Substance: OMALIZUMAB
     Indication: Angioedema
  5. XOLAIR [Suspect]
     Active Substance: OMALIZUMAB
     Indication: Asthma
  6. XOLAIR [Suspect]
     Active Substance: OMALIZUMAB
     Indication: Abdominal pain
  7. XOLAIR [Suspect]
     Active Substance: OMALIZUMAB
     Indication: Fatigue
  8. XOLAIR [Suspect]
     Active Substance: OMALIZUMAB
     Indication: Migraine
  9. XOLAIR PFS [Suspect]
     Active Substance: OMALIZUMAB
     Indication: Idiopathic urticaria
     Dosage: LAST INJECTION DATE: 21-FEB-2024
     Route: 058
     Dates: end: 20240221
  10. XOLAIR PFS [Suspect]
     Active Substance: OMALIZUMAB
  11. Gastrocrom 100 Mg/5 Ml Cone [Concomitant]
     Dosage: STRENGTH:100 MG/5 ML?TAKE UP TO 4 VIALS DAILY
  12. Ketotifen Fumarate Powder 100% [Concomitant]
  13. Montelukast Sod 10 Mg Tablet SIG [Concomitant]
  14. NORTRIPTYLINE HYDROCHLORIDE [Concomitant]
     Active Substance: NORTRIPTYLINE HYDROCHLORIDE
     Indication: Headache
     Route: 048
  15. ZYRTEC [Concomitant]
     Active Substance: CETIRIZINE HYDROCHLORIDE
     Indication: Rash
  16. PEPCID [Concomitant]
     Active Substance: FAMOTIDINE
     Indication: Rash

REACTIONS (4)
  - Wrong technique in product usage process [Unknown]
  - Product dose omission issue [Unknown]
  - Accidental exposure to product [Unknown]
  - No adverse event [Unknown]

NARRATIVE: CASE EVENT DATE: 20250201
